FAERS Safety Report 9721690 (Version 2)
Quarter: 2013Q4

REPORT INFORMATION
  Report Type: Spontaneous
  Country: US (occurrence: US)
  Receive Date: 20131201
  Receipt Date: 20131201
  Transmission Date: 20140711
  Serious: Yes (Other)
  Sender: FDA-Public Use
  Company Number: US-ABBVIE-12P-163-0945800-00

PATIENT
  Age: 64 Year
  Sex: 0
  Weight: 74 kg

DRUGS (9)
  1. ANDROGEL 1.62% [Suspect]
     Indication: BLOOD TESTOSTERONE DECREASED
     Dosage: DAILY
     Dates: start: 20120314, end: 20120316
  2. ANDROGEL 1.62% [Suspect]
     Indication: FATIGUE
  3. ANDROGEL 1.62% [Suspect]
     Indication: MALAISE
  4. ANDROGEL 1.62% [Suspect]
     Indication: LIBIDO DECREASED
  5. DIOVAN [Concomitant]
     Indication: HYPERTENSION
     Dates: start: 2009
  6. CRESTOR [Concomitant]
     Indication: BLOOD CHOLESTEROL INCREASED
     Dates: start: 2010
  7. BYSTOLIC [Concomitant]
     Indication: HYPERTENSION
     Dates: start: 2012
  8. LEXAPRO [Concomitant]
     Indication: DEPRESSION
     Dates: start: 2010
  9. LASIX [Concomitant]
     Indication: HYPERTENSION

REACTIONS (5)
  - Prostate cancer stage IV [Not Recovered/Not Resolved]
  - Diarrhoea [Not Recovered/Not Resolved]
  - Constipation [Not Recovered/Not Resolved]
  - Malaise [Unknown]
  - Fatigue [Unknown]
